FAERS Safety Report 10527598 (Version 1)
Quarter: 2014Q4

REPORT INFORMATION
  Report Type: Spontaneous
  Country: US (occurrence: None)
  Receive Date: 20141016
  Receipt Date: 20141016
  Transmission Date: 20150528
  Serious: Yes (Life-Threatening)
  Sender: FDA-Public Use
  Company Number: None

PATIENT
  Age: 63 Year
  Sex: Female
  Weight: 95.26 kg

DRUGS (2)
  1. PREDNISONE. [Suspect]
     Active Substance: PREDNISONE
     Indication: IODINE ALLERGY
     Dosage: 50MG X3?50MG @13 +7 +1 HR?TAKEN BY MOUTH
     Route: 048
     Dates: start: 20141013, end: 20141013
  2. PREDNISONE. [Suspect]
     Active Substance: PREDNISONE
     Indication: COMPUTERISED TOMOGRAM
     Dosage: 50MG X3?50MG @13 +7 +1 HR?TAKEN BY MOUTH
     Route: 048
     Dates: start: 20141013, end: 20141013

REACTIONS (4)
  - Dyspnoea [None]
  - Swollen tongue [None]
  - Tremor [None]
  - Vomiting [None]

NARRATIVE: CASE EVENT DATE: 20141013
